FAERS Safety Report 5524528-6 (Version None)
Quarter: 2007Q4

REPORT INFORMATION
  Report Type: 
  Country: None (occurrence: None)
  Receive Date: 20071122
  Receipt Date: 20071116
  Transmission Date: 20080405
  Serious: Yes (Other)
  Sender: FDA-Public Use
  Company Number: PHFR2007GB03370

PATIENT

DRUGS (1)
  1. DESFERAL [Suspect]
     Route: 065

REACTIONS (2)
  - EXTRAOCULAR MUSCLE DISORDER [None]
  - MYOSITIS [None]
